FAERS Safety Report 11422195 (Version 1)
Quarter: 2015Q3

REPORT INFORMATION
  Report Type: Report from Study
  Country: US (occurrence: US)
  Receive Date: 20150827
  Receipt Date: 20150827
  Transmission Date: 20151125
  Serious: Yes (Hospitalization, Other)
  Sender: FDA-Public Use
  Company Number: PHEH2015US016479

PATIENT
  Age: 53 Year
  Sex: Male

DRUGS (1)
  1. AFINITOR [Suspect]
     Active Substance: EVEROLIMUS
     Indication: PRODUCT USED FOR UNKNOWN INDICATION
     Dosage: 10 MG, QD
     Route: 048
     Dates: start: 20150814, end: 20150820

REACTIONS (5)
  - Urinary bladder haemorrhage [Unknown]
  - Contusion [Unknown]
  - Asthenia [Unknown]
  - Peripheral swelling [Unknown]
  - Influenza [Unknown]

NARRATIVE: CASE EVENT DATE: 20150814
